FAERS Safety Report 12797779 (Version 1)
Quarter: 2016Q3

REPORT INFORMATION
  Report Type: Spontaneous
  Country: US (occurrence: US)
  Receive Date: 20160929
  Receipt Date: 20160929
  Transmission Date: 20161109
  Serious: Yes (Hospitalization, Other)
  Sender: FDA-Public Use
  Company Number: None

PATIENT
  Age: 57 Year
  Sex: Female
  Weight: 87.1 kg

DRUGS (1)
  1. CANAGLIFLOZIN [Suspect]
     Active Substance: CANAGLIFLOZIN
     Indication: TYPE 2 DIABETES MELLITUS
     Route: 048
     Dates: start: 20160822, end: 20160913

REACTIONS (9)
  - Dehydration [None]
  - Hypophagia [None]
  - Dialysis [None]
  - Acute kidney injury [None]
  - Diarrhoea [None]
  - Hyperkalaemia [None]
  - Nausea [None]
  - Acidosis [None]
  - Vomiting [None]

NARRATIVE: CASE EVENT DATE: 20160913
